FAERS Safety Report 15469949 (Version 1)
Quarter: 2018Q4

REPORT INFORMATION
  Report Type: Spontaneous
  Country: US (occurrence: US)
  Receive Date: 20181005
  Receipt Date: 20181005
  Transmission Date: 20190205
  Serious: Yes (Hospitalization)
  Sender: FDA-Public Use
  Company Number: US-ELI_LILLY_AND_COMPANY-US201810002451

PATIENT
  Sex: Male

DRUGS (2)
  1. TALTZ [Suspect]
     Active Substance: IXEKIZUMAB
     Dosage: 80 MG, UNK
     Route: 058
     Dates: start: 20161108
  2. TALTZ [Suspect]
     Active Substance: IXEKIZUMAB
     Indication: PSORIASIS
     Dosage: 80 MG, UNKNOWN
     Route: 058
     Dates: start: 2016

REACTIONS (5)
  - Drug ineffective [Unknown]
  - Limb discomfort [Not Recovered/Not Resolved]
  - Cellulitis [Unknown]
  - Cellulitis [Recovered/Resolved]
  - Pain in extremity [Not Recovered/Not Resolved]
